FAERS Safety Report 17779488 (Version 3)
Quarter: 2020Q2

REPORT INFORMATION
  Report Type: Spontaneous
  Country: IT (occurrence: IT)
  Receive Date: 20200514
  Receipt Date: 20200623
  Transmission Date: 20200714
  Serious: Yes (Life-Threatening, Other)
  Sender: FDA-Public Use
  Company Number: IT-AUROBINDO-AUR-APL-2020-023997

PATIENT
  Age: 66 Year
  Sex: Male

DRUGS (2)
  1. AMOXICILLIN. [Suspect]
     Active Substance: AMOXICILLIN
     Indication: TOOTH DISORDER
     Dosage: 1 GRAM, TWO TIMES A DAY (3 DAYS P.O, )
     Route: 048
  2. AMOXICILLIN. [Suspect]
     Active Substance: AMOXICILLIN
     Indication: INFECTION

REACTIONS (4)
  - Dropped head syndrome [Recovered/Resolved]
  - Myasthenia gravis [Recovered/Resolved]
  - Mastication disorder [Recovered/Resolved]
  - Dysphagia [Recovered/Resolved]
